FAERS Safety Report 14103581 (Version 1)
Quarter: 2017Q4

REPORT INFORMATION
  Report Type: Spontaneous
  Country: NL (occurrence: NL)
  Receive Date: 20171018
  Receipt Date: 20171018
  Transmission Date: 20180321
  Serious: Yes (Other)
  Sender: FDA-Public Use
  Company Number: NL-JNJFOC-20171016282

PATIENT
  Age: 70 Year
  Sex: Female
  Weight: 74.83 kg

DRUGS (6)
  1. BECLOMETASONE DIPROPIONATE [Concomitant]
     Active Substance: BECLOMETHASONE DIPROPIONATE
     Dosage: 1 DF, BID
     Route: 045
  2. XARELTO [Suspect]
     Active Substance: RIVAROXABAN
     Indication: ATRIAL FIBRILLATION
     Route: 048
     Dates: start: 20170730, end: 20170816
  3. SOTALOL. [Concomitant]
     Active Substance: SOTALOL
     Route: 048
  4. COLECALCIFEROL [Concomitant]
     Active Substance: CHOLECALCIFEROL
     Route: 048
  5. AMITRIPTYLINE HYDROCHLORIDE. [Concomitant]
     Active Substance: AMITRIPTYLINE HYDROCHLORIDE
     Route: 048
  6. EUTHYROX [Concomitant]
     Active Substance: LEVOTHYROXINE SODIUM
     Route: 048

REACTIONS (5)
  - Faeces discoloured [Recovering/Resolving]
  - Abdominal pain [Recovering/Resolving]
  - Arrhythmia [Recovering/Resolving]
  - Weight decreased [Recovering/Resolving]
  - Constipation [Recovering/Resolving]

NARRATIVE: CASE EVENT DATE: 20170804
